FAERS Safety Report 5305177-1 (Version None)
Quarter: 2007Q2

REPORT INFORMATION
  Report Type: 
  Country: None (occurrence: None)
  Receive Date: 20070416
  Receipt Date: 20070403
  Transmission Date: 20071010
  Serious: Yes (Disabling)
  Sender: FDA-Public Use
  Company Number: ORACEA-2007-0024

PATIENT
  Age: 61 Year
  Sex: Male
  Weight: 113.3993 kg

DRUGS (2)
  1. ORACEA (DOXYCYCLINE), 40 MG, COLLAGENEX [Suspect]
     Indication: ROSACEA
     Dosage: 40MG, QD, PO
     Route: 048
     Dates: start: 20070201, end: 20070401
  2. FLEXERIL [Concomitant]

REACTIONS (4)
  - CONTUSION [None]
  - DEAFNESS [None]
  - HEADACHE [None]
  - TINNITUS [None]
